FAERS Safety Report 9493889 (Version 2)
Quarter: 2013Q3

REPORT INFORMATION
  Report Type: Spontaneous
  Country: CA (occurrence: CA)
  Receive Date: 20130903
  Receipt Date: 20130910
  Transmission Date: 20140515
  Serious: Yes (Death)
  Sender: FDA-Public Use
  Company Number: CA-PFIZER INC-2013251934

PATIENT
  Age: 70 Year
  Sex: Female
  Weight: 49.5 kg

DRUGS (4)
  1. INLYTA [Suspect]
     Indication: METASTATIC RENAL CELL CARCINOMA
     Dosage: 5 MG, CYCLIC (CYCLE 1)
     Dates: start: 20130621
  2. INLYTA [Suspect]
     Dosage: 9 MG, CYCLIC (CYCLE 2)
  3. INLYTA [Suspect]
     Dosage: 6 MG, CYCLIC (CYCLE 3)
     Dates: end: 20130814
  4. SYNTHROID [Concomitant]
     Dosage: UNK
     Dates: start: 2009

REACTIONS (2)
  - Disease progression [Fatal]
  - Metastatic renal cell carcinoma [Fatal]
